FAERS Safety Report 23066208 (Version 1)
Quarter: 2023Q4

REPORT INFORMATION
  Report Type: Spontaneous
  Country: IT (occurrence: IT)
  Receive Date: 20231015
  Receipt Date: 20231015
  Transmission Date: 20240109
  Serious: Yes (Other)
  Sender: FDA-Public Use
  Company Number: IT-MINISAL02-947701

PATIENT
  Age: 67 Year
  Sex: Male
  Weight: 67 kg

DRUGS (3)
  1. OXALIPLATIN [Suspect]
     Active Substance: OXALIPLATIN
     Indication: Adenocarcinoma of colon
     Dosage: 140 MILLIGRAM (EVERY 14 DAYS)
     Route: 042
     Dates: start: 20230918, end: 20230918
  2. BEVACIZUMAB [Suspect]
     Active Substance: BEVACIZUMAB
     Indication: Adenocarcinoma of colon
     Dosage: 335 MILLIGRAM (EVERY 14 DAYS)
     Route: 042
     Dates: start: 20230918, end: 20230918
  3. FLUOROURACIL [Suspect]
     Active Substance: FLUOROURACIL
     Indication: Adenocarcinoma of colon
     Dosage: 4680 MILLIGRAM (680 IN BOLUS + 4000 EV EVERY 14 DAYS)
     Route: 042
     Dates: start: 20230918, end: 20230918

REACTIONS (2)
  - Stomatitis [Recovering/Resolving]
  - Decreased appetite [Unknown]

NARRATIVE: CASE EVENT DATE: 20230919
